FAERS Safety Report 21003587 (Version 1)
Quarter: 2022Q2

REPORT INFORMATION
  Report Type: Spontaneous
  Country: AU (occurrence: AU)
  Receive Date: 20220624
  Receipt Date: 20220624
  Transmission Date: 20220721
  Serious: Yes (Other)
  Sender: FDA-Public Use
  Company Number: AU-SUN PHARMACEUTICAL INDUSTRIES LTD-2022R1-341574

PATIENT
  Age: 40 Year
  Sex: Male

DRUGS (3)
  1. DOXORUBICIN [Suspect]
     Active Substance: DOXORUBICIN
     Indication: Nephroblastoma
     Dosage: 60 MILLIGRAM
     Route: 042
  2. VINCRISTINE [Suspect]
     Active Substance: VINCRISTINE
     Indication: Nephroblastoma
     Dosage: 2 MIILLIGRAM
     Route: 042
  3. ACTINOMYCIN D [Suspect]
     Active Substance: DACTINOMYCIN
     Indication: Nephroblastoma
     Dosage: 2 MILLIGRAM
     Route: 042

REACTIONS (13)
  - Neutropenia [Unknown]
  - Neuropathy peripheral [Recovered/Resolved]
  - Alopecia [Unknown]
  - Dysaesthesia [Unknown]
  - Fatigue [Unknown]
  - Hyperaesthesia [Unknown]
  - Lethargy [Unknown]
  - Lymphopenia [Unknown]
  - Mucosal inflammation [Unknown]
  - Nausea [Unknown]
  - Stomatitis [Unknown]
  - Taste disorder [Unknown]
  - Transaminases abnormal [Recovering/Resolving]
